FAERS Safety Report 11505250 (Version 1)
Quarter: 2015Q3

REPORT INFORMATION
  Report Type: Spontaneous
  Country: US (occurrence: US)
  Receive Date: 20150915
  Receipt Date: 20150915
  Transmission Date: 20151125
  Serious: Yes (Hospitalization)
  Sender: FDA-Public Use
  Company Number: US-ROCHE-759073

PATIENT
  Age: 59 Year
  Sex: Male
  Weight: 120.7 kg

DRUGS (10)
  1. PEGASYS [Suspect]
     Active Substance: PEGINTERFERON ALFA-2A
     Indication: HEPATITIS C
     Route: 058
     Dates: start: 20110125, end: 20110204
  2. OMEPRAZOLE. [Concomitant]
     Active Substance: OMEPRAZOLE
     Indication: GASTROOESOPHAGEAL REFLUX DISEASE
     Route: 048
  3. CALCIUM [Concomitant]
     Active Substance: CALCIUM
     Dosage: WITH MEALS
     Route: 065
  4. TESTOSTERONE. [Concomitant]
     Active Substance: TESTOSTERONE
     Dosage: ROUTE: DERMAL
     Route: 065
  5. GABAPENTIN. [Concomitant]
     Active Substance: GABAPENTIN
     Route: 065
  6. CALCIUM CARBONATE. [Concomitant]
     Active Substance: CALCIUM CARBONATE
     Route: 048
  7. CHOLECALCIFEROL [Concomitant]
     Active Substance: CHOLECALCIFEROL
     Indication: VITAMIN D DEFICIENCY
     Route: 048
  8. COPEGUS [Suspect]
     Active Substance: RIBAVIRIN
     Indication: HEPATITIS C
     Dosage: DOSE: 200 MG X 2 IN THE MORNING AND 200 MG X 2 IN THE EVENING
     Route: 048
  9. TEMAZEPAM. [Concomitant]
     Active Substance: TEMAZEPAM
     Indication: SOMNOLENCE
     Route: 065
  10. FUROSEMIDE. [Concomitant]
     Active Substance: FUROSEMIDE
     Route: 065

REACTIONS (3)
  - Hallucination [Not Recovered/Not Resolved]
  - Disorientation [Unknown]
  - Muscular weakness [Unknown]

NARRATIVE: CASE EVENT DATE: 20110128
